FAERS Safety Report 10652701 (Version 1)
Quarter: 2014Q4

REPORT INFORMATION
  Report Type: Not Available
  Country: CH (occurrence: CH)
  Receive Date: 20141215
  Receipt Date: 20141215
  Transmission Date: 20150529
  Serious: Yes (Hospitalization)
  Sender: FDA-Public Use
  Company Number: CH-NAPPMUNDI-DEU-2014-0015882

PATIENT
  Age: 40 Year
  Sex: Male

DRUGS (13)
  1. SOLU-MEDROL [Suspect]
     Active Substance: METHYLPREDNISOLONE SODIUM SUCCINATE
     Indication: ACUTE RESPIRATORY DISTRESS SYNDROME
     Dosage: 40 MG, DAILY
     Route: 042
     Dates: start: 20141015, end: 20141021
  2. SEROQUEL [Concomitant]
     Active Substance: QUETIAPINE FUMARATE
     Route: 048
  3. PURSANA [Concomitant]
     Active Substance: FIG FRUIT OIL\SORBITOL
     Route: 048
  4. PIPERACILLIN AND TAZOBACTAM [Concomitant]
     Active Substance: PIPERACILLIN SODIUM\TAZOBACTAM SODIUM
     Indication: PNEUMONIA KLEBSIELLA
     Route: 042
  5. NICOTINELL                         /01033301/ [Concomitant]
     Indication: TOBACCO ABUSE
     Route: 062
  6. BECOZYME                           /01274401/ [Concomitant]
     Route: 048
  7. ANXIOLIT [Concomitant]
     Active Substance: OXAZEPAM
     Indication: DRUG DEPENDENCE
     Route: 048
  8. ROCEPHINE [Concomitant]
     Active Substance: CEFTRIAXONE SODIUM
     Indication: PNEUMONIA KLEBSIELLA
     Route: 042
  9. CLEXANE [Concomitant]
     Active Substance: ENOXAPARIN SODIUM
     Route: 058
  10. SEVREDOL 20 MG FILMTABLETTEN [Suspect]
     Active Substance: MORPHINE
     Indication: DRUG DEPENDENCE
     Dosage: 20 MG, Q4H
     Route: 048
  11. BENERVA [Concomitant]
     Active Substance: THIAMINE
     Route: 048
  12. AUGMENTIN [Concomitant]
     Active Substance: AMOXICILLIN\CLAVULANATE POTASSIUM
     Indication: PNEUMONIA BACTERIAL
     Dosage: UNK
     Route: 042
  13. HEROIN [Suspect]
     Active Substance: DIACETYLMORPHINE
     Indication: DRUG DEPENDENCE
     Route: 042

REACTIONS (1)
  - Secondary adrenocortical insufficiency [Recovering/Resolving]

NARRATIVE: CASE EVENT DATE: 20141022
